FAERS Safety Report 5009084-3 (Version None)
Quarter: 2006Q2

REPORT INFORMATION
  Report Type: 
  Country: None (occurrence: None)
  Receive Date: 20060523
  Receipt Date: 20060519
  Transmission Date: 20061013
  Serious: Yes (Life-Threatening, Hospitalization)
  Sender: FDA-Public Use
  Company Number: US-ABBOTT-06P-163-0333582-00

PATIENT
  Sex: Male
  Weight: 58.112 kg

DRUGS (8)
  1. RITONAVIR SOFT GELATIN CAPSULES [Suspect]
     Indication: HIV INFECTION
     Route: 048
     Dates: start: 20060509, end: 20060514
  2. TMC114 [Concomitant]
     Indication: HIV INFECTION
     Route: 048
     Dates: start: 20060509, end: 20060514
  3. TRUVADA [Concomitant]
     Indication: HIV INFECTION
     Route: 048
     Dates: start: 20060509, end: 20060514
  4. DAPSONE [Concomitant]
     Indication: ANTIBIOTIC PROPHYLAXIS
     Route: 048
  5. LORATADINE [Concomitant]
     Indication: SEASONAL ALLERGY
     Route: 048
     Dates: start: 20060418
  6. MAGIC MOUTH WASH [Concomitant]
     Indication: DRUG USE FOR UNKNOWN INDICATION
     Route: 048
     Dates: start: 20060503
  7. CARNATION INSTANT BREAKFAST [Concomitant]
     Indication: DRUG USE FOR UNKNOWN INDICATION
     Route: 048
     Dates: start: 20060327
  8. CLAVULIN [Concomitant]
     Indication: PHARYNGOLARYNGEAL PAIN
     Route: 048
     Dates: start: 20060503

REACTIONS (3)
  - PHARYNGOLARYNGEAL PAIN [None]
  - STEVENS-JOHNSON SYNDROME [None]
  - ULCER [None]
